FAERS Safety Report 4459143-9 (Version None)
Quarter: 2004Q3

REPORT INFORMATION
  Report Type: 
  Country: None (occurrence: None)
  Receive Date: 20040920
  Receipt Date: 20040920
  Transmission Date: 20050211
  Serious: Yes (Life-Threatening, Hospitalization)
  Sender: FDA-Public Use
  Company Number: None

PATIENT
  Sex: Male
  Weight: 118.8 kg

DRUGS (20)
  1. PREDNISONE 20MG, ROXANE [Suspect]
     Indication: B-CELL LYMPHOMA
     Dosage: 40 MG , D1-D14 , PO
     Route: 048
     Dates: start: 20040727, end: 20040809
  2. ADRIAMYCIN , 200 MG  BEDFORD [Suspect]
     Indication: B-CELL LYMPHOMA
     Dosage: 55 MG , D 1 +D8, IV
     Route: 042
     Dates: start: 20040727
  3. ADRIAMYCIN , 200 MG  BEDFORD [Suspect]
     Indication: B-CELL LYMPHOMA
     Dosage: 55 MG , D 1 +D8, IV
     Route: 042
     Dates: start: 20040803
  4. ADRIAMACIN, 200 MG BEDFORD [Suspect]
     Indication: B-CELL LYMPHOMA
  5. CYTOXAN, 1 GRAM, BRISTOL MYERS SQUIBB [Concomitant]
     Indication: B-CELL LYMPHOMA
     Dosage: 1430 MG , D1 AND D8, IV
     Route: 042
     Dates: start: 20040727
  6. CYTOXAN, 1 GRAM, BRISTOL MYERS SQUIBB [Concomitant]
     Indication: B-CELL LYMPHOMA
     Dosage: 1430 MG , D1 AND D8, IV
     Route: 042
     Dates: start: 20040803
  7. CYTOXAN, 1 GRAM, BRISTOL MYERS SQUIBB [Suspect]
  8. CYTOXAN, 1 GRAM, BRISTOL MYERS SQUIBB` [Suspect]
  9. ETOPOSIDE, 500 MG , BED [Suspect]
     Indication: B-CELL LYMPHOMA
     Dosage: 264 MG, D1 +D 8, IV
     Route: 042
     Dates: start: 20040727
  10. ETOPOSIDE, 500 MG , BED [Suspect]
     Indication: B-CELL LYMPHOMA
     Dosage: 264 MG, D1 +D 8, IV
     Route: 042
     Dates: start: 20040803
  11. SEPTRA DS [Concomitant]
  12. TENORMIN [Concomitant]
  13. ASPIRIN [Concomitant]
  14. ZOCOR [Concomitant]
  15. VITAMIN C [Concomitant]
  16. RABEPRAXOLE [Concomitant]
  17. VITAMIN E [Concomitant]
  18. EPOGEN [Concomitant]
  19. NITROGLYCERIN [Concomitant]
  20. ANZEMET [Concomitant]

REACTIONS (4)
  - ANAEMIA [None]
  - CHEST PAIN [None]
  - CORONARY OSTIAL STENOSIS [None]
  - DYSPNOEA EXERTIONAL [None]
